FAERS Safety Report 13026173 (Version 1)
Quarter: 2016Q4

REPORT INFORMATION
  Report Type: Spontaneous
  Country: US (occurrence: US)
  Receive Date: 20161214
  Receipt Date: 20161214
  Transmission Date: 20170207
  Serious: Yes (Hospitalization, Disabling, Other)
  Sender: FDA-Public Use
  Company Number: US-009507513-1103USA03949

PATIENT
  Sex: Female
  Weight: 68.95 kg

DRUGS (9)
  1. PREMARIN [Concomitant]
     Active Substance: ESTROGENS, CONJUGATED
     Dosage: 0.625 MG, QD
     Dates: end: 2004
  2. PREMARIN [Concomitant]
     Active Substance: ESTROGENS, CONJUGATED
     Indication: HORMONE REPLACEMENT THERAPY
     Dosage: 0.3 MG, QD
     Dates: start: 1997
  3. FOSAMAX [Suspect]
     Active Substance: ALENDRONATE SODIUM
     Dates: start: 200010, end: 2006
  4. MK-9278 [Concomitant]
     Active Substance: VITAMINS
  5. FOSAMAX [Suspect]
     Active Substance: ALENDRONATE SODIUM
     Route: 048
     Dates: start: 2002, end: 2006
  6. FOSAMAX PLUS D [Suspect]
     Active Substance: ALENDRONATE SODIUM\CHOLECALCIFEROL
     Indication: OSTEOPOROSIS
     Dates: start: 200010, end: 2006
  7. RECLAST [Suspect]
     Active Substance: ZOLEDRONIC ACID
     Dosage: 5 MG, UNK
     Dates: start: 200807, end: 200907
  8. BONIVA [Suspect]
     Active Substance: IBANDRONATE SODIUM
     Dates: start: 200604, end: 200806
  9. FOSAMAX [Suspect]
     Active Substance: ALENDRONATE SODIUM
     Indication: OSTEOPOROSIS
     Dosage: 70 MG, QW
     Route: 048
     Dates: start: 2000, end: 20051128

REACTIONS (66)
  - Femur fracture [Unknown]
  - Epicondylitis [Unknown]
  - Stress urinary incontinence [Unknown]
  - Urinary incontinence [Unknown]
  - Hot flush [Unknown]
  - Tooth fracture [Unknown]
  - Tooth fracture [Unknown]
  - Femur fracture [Unknown]
  - Constipation [Unknown]
  - Pain [Recovered/Resolved]
  - Depression [Unknown]
  - Device failure [Unknown]
  - Femur fracture [Unknown]
  - Femur fracture [Recovered/Resolved]
  - Type 2 diabetes mellitus [Unknown]
  - Jaw fracture [Unknown]
  - Osteoarthritis [Unknown]
  - Major depression [Unknown]
  - Hypercalciuria [Unknown]
  - Abdominal pain [Unknown]
  - Bone pain [Unknown]
  - Nasal septum perforation [Unknown]
  - Hypertension [Unknown]
  - Hepatic steatosis [Unknown]
  - Rib fracture [Recovered/Resolved]
  - Abdominal pain [Unknown]
  - Tendonitis [Unknown]
  - Cystocele [Unknown]
  - Hyperuricosuria [Unknown]
  - Influenza like illness [Recovered/Resolved]
  - Fibromyalgia [Unknown]
  - Foot fracture [Unknown]
  - Alopecia [Unknown]
  - Chest pain [Unknown]
  - Abdominal discomfort [Unknown]
  - Haemorrhoids [Unknown]
  - Influenza like illness [Recovered/Resolved]
  - Pain [Recovered/Resolved]
  - Lymphoproliferative disorder [Unknown]
  - Bursitis [Not Recovered/Not Resolved]
  - Vitamin D deficiency [Unknown]
  - Liver function test increased [Unknown]
  - Tendonitis [Unknown]
  - Femur fracture [Unknown]
  - Cardiac stress test abnormal [Unknown]
  - Femur fracture [Unknown]
  - Anxiety [Unknown]
  - Osteodystrophy [Unknown]
  - Gastrooesophageal reflux disease [Unknown]
  - Femur fracture [Unknown]
  - Osteoporotic fracture [Unknown]
  - Stress fracture [Unknown]
  - Adverse drug reaction [Recovered/Resolved]
  - Sinus pain [Unknown]
  - Tooth abscess [Unknown]
  - Fatigue [Unknown]
  - Tendonitis [Unknown]
  - Chest pain [Unknown]
  - Gastritis [Unknown]
  - Arthritis [Unknown]
  - Obsessive-compulsive disorder [Unknown]
  - Femur fracture [Unknown]
  - Upper limb fracture [Unknown]
  - Adverse drug reaction [Recovered/Resolved]
  - Nausea [Unknown]
  - Hyperlipidaemia [Unknown]

NARRATIVE: CASE EVENT DATE: 2000
